FAERS Safety Report 10224933 (Version 1)
Quarter: 2014Q2

REPORT INFORMATION
  Report Type: Spontaneous
  Country: NL (occurrence: NL)
  Receive Date: 20140609
  Receipt Date: 20140609
  Transmission Date: 20141212
  Serious: Yes (Other)
  Sender: FDA-Public Use
  Company Number: GB-BRISTOL-MYERS SQUIBB COMPANY-20976932

PATIENT
  Age: 31 Year
  Sex: Male
  Weight: 110 kg

DRUGS (1)
  1. ABILIFY TABS 10 MG [Suspect]
     Indication: PSYCHOTIC DISORDER
     Dosage: IN MORNING
     Dates: start: 20100201, end: 20120301

REACTIONS (4)
  - Mania [Recovered/Resolved]
  - Impulse-control disorder [Recovered/Resolved]
  - Pathological gambling [Recovered/Resolved]
  - Off label use [Unknown]
